FAERS Safety Report 8532844-9 (Version None)
Quarter: 2012Q3

REPORT INFORMATION
  Report Type: 
  Country: None (occurrence: None)
  Receive Date: 20120712
  Receipt Date: 20120706
  Transmission Date: 20120928
  Serious: Yes (Life-Threatening)
  Sender: FDA-Public Use
  Company Number: 2011000356

PATIENT
  Age: 79 Year
  Sex: Male

DRUGS (16)
  1. TARCEVA [Suspect]
     Indication: HYPERTENSION
     Dosage: 150 MG, UID/QD, ORAL
     Route: 048
     Dates: start: 20110115, end: 20120101
  2. TARCEVA [Suspect]
     Indication: HYPERCHOLESTEROLAEMIA
     Dosage: 150 MG, UID/QD, ORAL
     Route: 048
     Dates: start: 20110115, end: 20120101
  3. TARCEVA [Suspect]
     Indication: LUNG NEOPLASM MALIGNANT
     Dosage: 150 MG, UID/QD, ORAL
     Route: 048
     Dates: start: 20110115, end: 20120101
  4. METHADONE HYDROCHLORIDE [Concomitant]
  5. DOXYCYCLINE [Concomitant]
  6. TOPROL-XL [Concomitant]
  7. BAYER ASPIRIN (ACETYLSALICYLIC ACID) TABLET [Concomitant]
  8. NITROGLYCERINE (GLYCERYL TRINITRATE) CAPSULE [Concomitant]
  9. SENOKOT (SENNA FRUIT) TABLET [Concomitant]
  10. MORPHINE SULFATE INJ [Concomitant]
  11. ZOMETA [Concomitant]
  12. OS-CAL (CALCIUM, ERGOCALCIFEROL) TABLET [Concomitant]
  13. GABAPENTIN (GABAPENTIN) CAPSULE [Concomitant]
  14. PLAVIX [Concomitant]
  15. HYDROCODONE W/APAP (HYDROCODONE, PARACETAMOL) [Concomitant]
  16. CRESTOR [Concomitant]

REACTIONS (7)
  - WEIGHT DECREASED [None]
  - RHINORRHOEA [None]
  - OFF LABEL USE [None]
  - HAIR COLOUR CHANGES [None]
  - DYSGEUSIA [None]
  - DECREASED APPETITE [None]
  - RASH ERYTHEMATOUS [None]
